FAERS Safety Report 8853831 (Version 2)
Quarter: 2013Q2

REPORT INFORMATION
  Report Type: Spontaneous
  Country: US (occurrence: None)
  Receive Date: 20120426
  Receipt Date: 20120703
  Transmission Date: 20140414
  Serious: No
  Sender: FDA-Public Use
  Company Number: PHEH2011US013025

PATIENT
  Age: 48 Year
  Sex: Female

DRUGS (1)
  1. GILENYA [Suspect]
     Indication: MULTIPLE SCLEROSIS
     Route: 048
     Dates: start: 20110921

REACTIONS (9)
  - Muscle spasms [None]
  - Cognitive disorder [None]
  - Speech disorder [None]
  - Visual impairment [None]
  - Oropharyngeal pain [None]
  - Muscle spasms [None]
  - Headache [None]
  - Vision blurred [None]
  - Infection [None]
